FAERS Safety Report 19955621 (Version 1)
Quarter: 2021Q4

REPORT INFORMATION
  Report Type: Report from Study
  Country: PK (occurrence: PK)
  Receive Date: 20211014
  Receipt Date: 20211014
  Transmission Date: 20220303
  Serious: Yes (Other)
  Sender: FDA-Public Use
  Company Number: PK-NOVARTISPH-NVSC2020PK029120

PATIENT
  Age: 72 Year
  Sex: Female
  Weight: 78 kg

DRUGS (4)
  1. GLIVEC [Suspect]
     Active Substance: IMATINIB MESYLATE
     Indication: Philadelphia positive chronic myeloid leukaemia
     Dosage: 6 DF (600 MG), QD
     Route: 048
     Dates: start: 20131203, end: 20210209
  2. GLIVEC [Suspect]
     Active Substance: IMATINIB MESYLATE
     Dosage: 4 DF, QD
     Route: 048
     Dates: start: 20131203, end: 20211006
  3. GLIVEC [Suspect]
     Active Substance: IMATINIB MESYLATE
     Dosage: 6 DF, QD
     Route: 048
     Dates: start: 20190806, end: 20200203
  4. GLIVEC [Suspect]
     Active Substance: IMATINIB MESYLATE
     Dosage: 4 DF (400 MG), QD
     Route: 048
     Dates: start: 20210210

REACTIONS (6)
  - Bicytopenia [Not Recovered/Not Resolved]
  - Blast cell count increased [Not Recovered/Not Resolved]
  - Leukocytosis [Not Recovered/Not Resolved]
  - Anaemia [Not Recovered/Not Resolved]
  - Cytogenetic analysis abnormal [Not Recovered/Not Resolved]
  - Thrombocytosis [Not Recovered/Not Resolved]

NARRATIVE: CASE EVENT DATE: 20200203
